FAERS Safety Report 9604114 (Version 2)
Quarter: 2013Q4

REPORT INFORMATION
  Report Type: Spontaneous
  Country: US (occurrence: US)
  Receive Date: 20131008
  Receipt Date: 20131114
  Transmission Date: 20140711
  Serious: Yes (Hospitalization)
  Sender: FDA-Public Use
  Company Number: US-JNJFOC-20130915258

PATIENT
  Age: 90 Year
  Sex: Female
  Weight: 40.82 kg

DRUGS (2)
  1. TYLENOL CHILDRENS SUSPENSION LIQUID GRAPE [Suspect]
     Route: 048
  2. TYLENOL CHILDRENS SUSPENSION LIQUID GRAPE [Suspect]
     Indication: PAIN
     Route: 048

REACTIONS (2)
  - Somnolence [Unknown]
  - Drug administered to patient of inappropriate age [Unknown]
